FAERS Safety Report 4777583-5 (Version None)
Quarter: 2005Q3

REPORT INFORMATION
  Report Type: 
  Country: None (occurrence: None)
  Receive Date: 20050921
  Receipt Date: 20050916
  Transmission Date: 20060218
  Serious: Yes (Death, Hospitalization)
  Sender: FDA-Public Use
  Company Number: 05-NIP00081

PATIENT
  Age: 72 Year
  Sex: Female

DRUGS (3)
  1. NIPENT [Suspect]
     Indication: EXTRANODAL MARGINAL ZONE B-CELL LYMPHOMA (MALT TYPE)
     Dosage: 0.1905 MG/M2 (2 MG/M2, EVERY 21 DAYS), INTRAVENOUS
     Route: 042
     Dates: start: 20050912
  2. RITUXAN [Suspect]
     Dosage: 17.8571 MG/M2 (275 MG/M2, EVERY 21 DAYS), INTRAVENOUS
     Route: 042
     Dates: start: 20050912
  3. CYTOXAN [Suspect]
     Dosage: 28.5714 MG/M2 (600 MG/M2, EVERY 21 DAYS), INTRAVENOUS
     Route: 042
     Dates: start: 20050912

REACTIONS (3)
  - ACIDOSIS [None]
  - GASTROENTERITIS [None]
  - RENAL FAILURE [None]
